FAERS Safety Report 6306256-2 (Version None)
Quarter: 2009Q3

REPORT INFORMATION
  Report Type: 
  Country: None (occurrence: None)
  Receive Date: 20090812
  Receipt Date: 20090803
  Transmission Date: 20100115
  Serious: Yes (Hospitalization)
  Sender: FDA-Public Use
  Company Number: PHEH2009US08671

PATIENT
  Sex: Male

DRUGS (7)
  1. GLEEVEC [Suspect]
     Indication: LYMPHOCYTIC LEUKAEMIA
     Dosage: 400 MG, QD
     Route: 048
     Dates: start: 20030201
  2. RISPERDAL [Concomitant]
  3. DIFLUCAN [Concomitant]
  4. ZANTAC [Concomitant]
  5. CONCERTA [Concomitant]
  6. CLONIDINE [Concomitant]
  7. NORVASC [Concomitant]

REACTIONS (3)
  - HEPATIC FUNCTION ABNORMAL [None]
  - INFLAMMATION [None]
  - PLEURAL EFFUSION [None]
